FAERS Safety Report 20797633 (Version 1)
Quarter: 2022Q2

REPORT INFORMATION
  Report Type: Spontaneous
  Country: US (occurrence: None)
  Receive Date: 20220505
  Receipt Date: 20220505
  Transmission Date: 20220721
  Serious: Yes (Hospitalization)
  Sender: FDA-Public Use
  Company Number: None

PATIENT
  Age: 70 Year
  Sex: Male

DRUGS (12)
  1. AMBRISENTAN [Suspect]
     Active Substance: AMBRISENTAN
     Indication: Pulmonary arterial hypertension
     Dosage: FREQUENCY : DAILY;?
     Route: 048
     Dates: start: 20210603
  2. TADALAFIL [Concomitant]
     Active Substance: TADALAFIL
  3. WARFARIN [Concomitant]
     Active Substance: WARFARIN
  4. METOPROLOL [Concomitant]
     Active Substance: METOPROLOL
  5. PANTOPRAZOLE [Concomitant]
     Active Substance: PANTOPRAZOLE
  6. VIXELA INHUB [Concomitant]
  7. OXYGEN [Concomitant]
     Active Substance: OXYGEN
  8. SIMVASTATIN [Concomitant]
     Active Substance: SIMVASTATIN
  9. FERROUS SULFATE [Concomitant]
     Active Substance: FERROUS SULFATE
  10. TORSEMIDE [Concomitant]
     Active Substance: TORSEMIDE
  11. K-TAB [Concomitant]
     Active Substance: POTASSIUM CHLORIDE
  12. GABAPENTIN [Concomitant]
     Active Substance: GABAPENTIN

REACTIONS (3)
  - Respiratory failure [None]
  - Pneumonia [None]
  - Bronchiolitis [None]

NARRATIVE: CASE EVENT DATE: 20220421
